FAERS Safety Report 16300281 (Version 2)
Quarter: 2019Q3

REPORT INFORMATION
  Report Type: Spontaneous
  Country: US (occurrence: US)
  Receive Date: 20190510
  Receipt Date: 20190731
  Transmission Date: 20191004
  Serious: Yes (Other)
  Sender: FDA-Public Use
  Company Number: US-ASTRAZENECA-2018SF22026

PATIENT
  Age: 45 Year
  Sex: Male

DRUGS (25)
  1. PRILOSEC [Suspect]
     Active Substance: OMEPRAZOLE MAGNESIUM
     Indication: DYSPEPSIA
     Route: 048
     Dates: start: 2000, end: 2017
  2. LISINOPRIL. [Concomitant]
     Active Substance: LISINOPRIL
  3. LANTUS SOLOSTAR [Concomitant]
     Active Substance: INSULIN GLARGINE
  4. ASPIRIN. [Concomitant]
     Active Substance: ASPIRIN
  5. REVATIO [Concomitant]
     Active Substance: SILDENAFIL CITRATE
  6. PRILOSEC [Suspect]
     Active Substance: OMEPRAZOLE MAGNESIUM
     Indication: DYSPEPSIA
     Route: 048
     Dates: start: 2000, end: 2015
  7. PRILOSEC OTC [Suspect]
     Active Substance: OMEPRAZOLE MAGNESIUM
     Indication: DYSPEPSIA
     Route: 048
     Dates: start: 2003, end: 2017
  8. PENICILLIN NOS [Concomitant]
     Active Substance: PENICILLIN
  9. BENZONATATE. [Concomitant]
     Active Substance: BENZONATATE
  10. HUMALIN [Concomitant]
     Active Substance: INSULIN NOS
  11. PREDNISONE. [Concomitant]
     Active Substance: PREDNISONE
  12. CODEINE [Concomitant]
     Active Substance: CODEINE
  13. ATORVASTATIN [Concomitant]
     Active Substance: ATORVASTATIN
  14. SILDENAFIL. [Concomitant]
     Active Substance: SILDENAFIL
  15. GLIPIZIDE. [Concomitant]
     Active Substance: GLIPIZIDE
  16. TIZANIDINE. [Concomitant]
     Active Substance: TIZANIDINE
  17. PEPCID [Concomitant]
     Active Substance: FAMOTIDINE
  18. PRILOSEC OTC [Suspect]
     Active Substance: OMEPRAZOLE MAGNESIUM
     Indication: DYSPEPSIA
     Route: 048
     Dates: start: 2000, end: 2017
  19. QVAR [Concomitant]
     Active Substance: BECLOMETHASONE DIPROPIONATE
  20. LASIX [Concomitant]
     Active Substance: FUROSEMIDE
  21. ALLOPURINOL. [Concomitant]
     Active Substance: ALLOPURINOL
  22. FLUTICASONE. [Concomitant]
     Active Substance: FLUTICASONE
  23. CHERATUSSIN [Concomitant]
     Active Substance: AMMONIUM CHLORIDE\DEXTROMETHORPHAN\SODIUM CITRATE
  24. HUMALOG [Concomitant]
     Active Substance: INSULIN LISPRO
  25. CEFUROXIME. [Concomitant]
     Active Substance: CEFUROXIME

REACTIONS (4)
  - Chronic kidney disease [Not Recovered/Not Resolved]
  - Hyperparathyroidism secondary [Unknown]
  - End stage renal disease [Not Recovered/Not Resolved]
  - Renal failure [Unknown]

NARRATIVE: CASE EVENT DATE: 2012
